FAERS Safety Report 17576671 (Version 1)
Quarter: 2020Q1

REPORT INFORMATION
  Report Type: Spontaneous
  Country: US (occurrence: US)
  Receive Date: 20200324
  Receipt Date: 20200324
  Transmission Date: 20200409
  Serious: Yes (Hospitalization, Other)
  Sender: FDA-Public Use
  Company Number: US-SA-2020SA073746

PATIENT
  Sex: Female

DRUGS (2)
  1. DUPIXENT [Suspect]
     Active Substance: DUPILUMAB
     Dosage: 300 MG, QOW
     Dates: start: 20200311
  2. DUPIXENT [Suspect]
     Active Substance: DUPILUMAB
     Indication: DERMATITIS ATOPIC
     Dosage: 600 MG, 1X
     Dates: start: 20200225, end: 20200225

REACTIONS (15)
  - White blood cell count decreased [Unknown]
  - Injection site reaction [Unknown]
  - Product use issue [Unknown]
  - Dizziness [Unknown]
  - Pyrexia [Unknown]
  - Musculoskeletal stiffness [Unknown]
  - Headache [Unknown]
  - Frustration tolerance decreased [Unknown]
  - Cellulitis [Unknown]
  - Sepsis [Unknown]
  - Hypotension [Unknown]
  - Influenza [Unknown]
  - Mobility decreased [Unknown]
  - Injection site erythema [Unknown]
  - Stress [Unknown]

NARRATIVE: CASE EVENT DATE: 20200225
